FAERS Safety Report 5640783-6 (Version None)
Quarter: 2008Q1

REPORT INFORMATION
  Report Type: 
  Country: None (occurrence: None)
  Receive Date: 20080227
  Receipt Date: 20080222
  Transmission Date: 20080703
  Serious: Yes (Death)
  Sender: FDA-Public Use
  Company Number: US-ABBOTT-08P-163-0439543-00

PATIENT

DRUGS (3)
  1. RITONAVIR CAPSULES [Suspect]
     Indication: DRUG USE FOR UNKNOWN INDICATION
  2. APTIVUS [Suspect]
     Indication: DRUG USE FOR UNKNOWN INDICATION
  3. ENFUVIRTIDE [Suspect]
     Indication: DRUG USE FOR UNKNOWN INDICATION

REACTIONS (2)
  - COMPLETED SUICIDE [None]
  - DEPRESSION [None]
